FAERS Safety Report 6669472-6 (Version None)
Quarter: 2010Q2

REPORT INFORMATION
  Report Type: 
  Country: None (occurrence: None)
  Receive Date: 20100406
  Receipt Date: 20100326
  Transmission Date: 20101027
  Serious: Yes (Other)
  Sender: FDA-Public Use
  Company Number: PHHY2010CH18149

PATIENT

DRUGS (1)
  1. VOLTAREN [Suspect]
     Dosage: 75 MG, UNK
     Route: 042
     Dates: start: 20100101

REACTIONS (1)
  - DRUG ADMINISTRATION ERROR [None]
